FAERS Safety Report 23863975 (Version 1)
Quarter: 2024Q2

REPORT INFORMATION
  Report Type: Spontaneous
  Country: US (occurrence: None)
  Receive Date: 20240516
  Receipt Date: 20240516
  Transmission Date: 20240716
  Serious: No
  Sender: FDA-Public Use
  Company Number: None

PATIENT
  Age: 69 Year
  Sex: Female

DRUGS (1)
  1. ILUMYA [Suspect]
     Active Substance: TILDRAKIZUMAB-ASMN
     Indication: Psoriasis
     Dosage: FREQUENCY : AS DIRECTED;?INJECT 100MG SUBCUTANEOUSLY AT WEEK 0 AND WEEK 4 AS DIRECTED.?
     Route: 058

REACTIONS (2)
  - Nasopharyngitis [None]
  - Oropharyngeal pain [None]
